FAERS Safety Report 10252414 (Version 1)
Quarter: 2014Q2

REPORT INFORMATION
  Report Type: Spontaneous
  Country: US (occurrence: US)
  Receive Date: 20140623
  Receipt Date: 20140623
  Transmission Date: 20141212
  Serious: No
  Sender: FDA-Public Use
  Company Number: US-009507513-1406USA003311

PATIENT
  Age: 44 Year
  Sex: Male

DRUGS (2)
  1. PEGINTRON [Suspect]
     Indication: HEPATITIS C
     Dosage: 150MCG/ONCE WEEKLY,REDIPEN
     Dates: start: 20140430, end: 20140514
  2. PEGINTRON [Suspect]
     Dosage: 1/2 NORMAL DOSE, REDIPEN
     Dates: start: 20140514

REACTIONS (5)
  - Bone pain [Not Recovered/Not Resolved]
  - Abdominal discomfort [Not Recovered/Not Resolved]
  - Asthenia [Not Recovered/Not Resolved]
  - Product quality issue [Unknown]
  - Underdose [Unknown]
